FAERS Safety Report 16243306 (Version 1)
Quarter: 2019Q2

REPORT INFORMATION
  Report Type: Spontaneous
  Country: US (occurrence: US)
  Receive Date: 20190426
  Receipt Date: 20190426
  Transmission Date: 20190711
  Serious: No
  Sender: FDA-Public Use
  Company Number: US-ASTRAZENECA-2019SE51296

PATIENT
  Age: 867 Month
  Sex: Male
  Weight: 68 kg

DRUGS (12)
  1. BENICAR HCT [Concomitant]
     Active Substance: HYDROCHLOROTHIAZIDE\OLMESARTAN MEDOXOMIL
     Indication: BLOOD PRESSURE ABNORMAL
     Dosage: 40MG-25MG, DAILY
     Route: 048
  2. CARVEDILOL. [Concomitant]
     Active Substance: CARVEDILOL
     Indication: CARDIAC DISORDER
     Route: 048
  3. BRILINTA [Suspect]
     Active Substance: TICAGRELOR
     Indication: CEREBROVASCULAR ACCIDENT
     Route: 048
     Dates: start: 20190212, end: 201903
  4. BENICAR HCT [Concomitant]
     Active Substance: HYDROCHLOROTHIAZIDE\OLMESARTAN MEDOXOMIL
     Indication: CARDIAC DISORDER
     Dosage: 40MG-25MG, DAILY
     Route: 048
  5. AMLODIPINE [Concomitant]
     Active Substance: AMLODIPINE BESYLATE
     Indication: CARDIAC DISORDER
     Route: 048
  6. ATORVASTATIN [Concomitant]
     Active Substance: ATORVASTATIN
     Indication: CEREBROVASCULAR ACCIDENT
     Route: 048
     Dates: start: 201804
  7. METAMUCIL [Concomitant]
     Active Substance: PLANTAGO SEED
     Dosage: 1TSP TWO TIMES A DAY
     Route: 048
  8. BRILINTA [Suspect]
     Active Substance: TICAGRELOR
     Indication: CEREBROVASCULAR ACCIDENT
     Route: 048
     Dates: start: 201903
  9. CARVEDILOL. [Concomitant]
     Active Substance: CARVEDILOL
     Indication: BLOOD PRESSURE ABNORMAL
     Route: 048
  10. CHOLESTYRAMINE LITE [Concomitant]
     Indication: BLOOD CHOLESTEROL ABNORMAL
     Dosage: 1 SCOOP TWO TIMES A DAY
     Route: 048
  11. CHOLESTYRAMINE LITE [Concomitant]
     Indication: ILL-DEFINED DISORDER
     Dosage: 1 SCOOP TWO TIMES A DAY
     Route: 048
  12. AMLODIPINE [Concomitant]
     Active Substance: AMLODIPINE BESYLATE
     Indication: BLOOD PRESSURE ABNORMAL
     Route: 048

REACTIONS (5)
  - Off label use [Not Recovered/Not Resolved]
  - Photophobia [Not Recovered/Not Resolved]
  - Off label use [Not Recovered/Not Resolved]
  - Product use in unapproved indication [Not Recovered/Not Resolved]
  - Product use in unapproved therapeutic environment [Not Recovered/Not Resolved]

NARRATIVE: CASE EVENT DATE: 201902
